FAERS Safety Report 4514681-5 (Version None)
Quarter: 2004Q4

REPORT INFORMATION
  Report Type: 
  Country: None (occurrence: None)
  Receive Date: 20041126
  Receipt Date: 20041111
  Transmission Date: 20050328
  Serious: Yes (Hospitalization)
  Sender: FDA-Public Use
  Company Number: CAR-2004-015

PATIENT
  Age: 5 Year
  Sex: Male

DRUGS (10)
  1. SUCRALFATE [Suspect]
     Indication: GASTRITIS
     Dosage: 1 G ORAL
     Route: 048
     Dates: start: 20031203, end: 20040421
  2. VITAMIN B6 (VITAMIN B6) [Concomitant]
  3. URALYT (ARNICA EXTRACT, CONVALLARIA GLYCOSIDES, ECHINACEA ANGUSTIFOLIA [Concomitant]
  4. INCREMIN (THIAMINE HYDROCHLORIDE, PYRIDOXINE HYDROCHLORIDE, LYSINE HYD [Concomitant]
  5. ALFAROL (ALFACALCIDOL) [Concomitant]
  6. PHOSPHATES ENEMA (SODIUM PHOSPHATE MONOBASIC (ANHYDRATE), SODIUM PHOSP [Concomitant]
  7. INCREMIN (PYRIDOXINE HYDROCHLORIDE, THIAMINE HYDROCHLORIDE, CYANOCOBAL [Concomitant]
  8. DIAPP (DIAZEPAM) [Concomitant]
  9. ALLOID (SODIUM ALGINATE) [Concomitant]
  10. LAC B (LACTOBACILLUS BIFIDUS, LYOPHILIZED), [Concomitant]

REACTIONS (9)
  - ANAEMIA [None]
  - ATROPHY [None]
  - BLOOD ALUMINIUM INCREASED [None]
  - BONE DISORDER [None]
  - BONE MARROW DEPRESSION [None]
  - FRACTURE [None]
  - INFLAMMATION [None]
  - RENAL DISORDER [None]
  - SPINAL DISORDER [None]
